FAERS Safety Report 5803966-8 (Version None)
Quarter: 2008Q3

REPORT INFORMATION
  Report Type: 
  Country: None (occurrence: None)
  Receive Date: 20080708
  Receipt Date: 20080626
  Transmission Date: 20090109
  Serious: Yes (Hospitalization, Other)
  Sender: FDA-Public Use
  Company Number: JP-PFIZER INC-2008055358

PATIENT
  Age: 67 Year
  Sex: Female

DRUGS (1)
  1. CELECOX [Suspect]
     Indication: OSTEOARTHRITIS
     Dosage: DAILY DOSE:200MG
     Route: 048
     Dates: start: 20080528, end: 20080604

REACTIONS (4)
  - GASTROINTESTINAL INFECTION [None]
  - MUCOUS MEMBRANE DISORDER [None]
  - PYREXIA [None]
  - VOMITING [None]
